FAERS Safety Report 8076999-1 (Version None)
Quarter: 2012Q1

REPORT INFORMATION
  Report Type: 
  Country: None (occurrence: None)
  Receive Date: 20120127
  Receipt Date: 20120118
  Transmission Date: 20120608
  Serious: Yes (Hospitalization)
  Sender: FDA-Public Use
  Company Number: JP-GLAXOSMITHKLINE-B0776755A

PATIENT
  Sex: Female
  Weight: 45 kg

DRUGS (12)
  1. PROHEPARUM [Concomitant]
     Indication: HEPATIC FUNCTION ABNORMAL
     Route: 048
     Dates: start: 20110311
  2. TYKERB [Suspect]
     Dosage: 1000MG PER DAY
     Route: 048
     Dates: start: 20111102, end: 20111215
  3. FAMOTIDINE [Concomitant]
     Indication: CANCER PAIN
     Route: 048
     Dates: start: 20110810
  4. TRAMADOL HYDROCHLORIDE [Concomitant]
     Indication: CANCER PAIN
     Route: 048
     Dates: start: 20110810
  5. XELODA [Suspect]
     Dosage: 2400MG PER DAY
     Route: 048
     Dates: start: 20111228
  6. URSO 250 [Concomitant]
     Indication: HEPATIC FUNCTION ABNORMAL
     Route: 048
     Dates: start: 20110311
  7. CELECOXIB [Concomitant]
     Indication: CANCER PAIN
     Route: 048
     Dates: start: 20110810
  8. ZOMETA [Concomitant]
     Indication: PAIN PROPHYLAXIS
     Route: 042
     Dates: start: 20090324
  9. TYKERB [Suspect]
     Indication: BREAST CANCER
     Dosage: 1250MG PER DAY
     Route: 048
     Dates: start: 20110810, end: 20111101
  10. TYKERB [Suspect]
     Dosage: 1000MG PER DAY
     Route: 048
     Dates: start: 20111228
  11. XELODA [Suspect]
     Indication: PRODUCT USED FOR UNKNOWN INDICATION
     Dosage: 2400MG PER DAY
     Route: 048
     Dates: start: 20110810, end: 20111209
  12. HIRUDOID [Concomitant]
     Indication: PROPHYLAXIS
     Route: 061
     Dates: start: 20110810

REACTIONS (1)
  - DEHYDRATION [None]
